FAERS Safety Report 16141268 (Version 3)
Quarter: 2019Q4

REPORT INFORMATION
  Report Type: Spontaneous
  Country: US (occurrence: US)
  Receive Date: 20190401
  Receipt Date: 20191125
  Transmission Date: 20200122
  Serious: Yes (Other)
  Sender: FDA-Public Use
  Company Number: US-PFIZER INC-2019130846

PATIENT
  Age: 77 Year
  Sex: Female

DRUGS (3)
  1. CELEBREX [Suspect]
     Active Substance: CELECOXIB
     Indication: ARTHRITIS
     Dosage: 400 MG, 1X/DAY (200MG, 2 TABLETS ONCE DAILY)
  2. CELEBREX [Suspect]
     Active Substance: CELECOXIB
     Dosage: 200 MG, 2X/DAY
     Dates: start: 2008
  3. ADVAIR HFA [Concomitant]
     Active Substance: FLUTICASONE PROPIONATE\SALMETEROL XINAFOATE
     Dosage: INHALER 1 PUFF (250MCG-50MCG), 2X/DAY
     Route: 055

REACTIONS (4)
  - Parkinson^s disease [Unknown]
  - Influenza [Unknown]
  - Memory impairment [Unknown]
  - Malaise [Not Recovered/Not Resolved]
